FAERS Safety Report 20228084 (Version 1)
Quarter: 2021Q4

REPORT INFORMATION
  Report Type: Spontaneous
  Country: ES (occurrence: ES)
  Receive Date: 20211224
  Receipt Date: 20211224
  Transmission Date: 20220303
  Serious: Yes (Other)
  Sender: FDA-Public Use
  Company Number: None

PATIENT
  Age: 55 Year
  Sex: Female

DRUGS (1)
  1. COSENTYX [Suspect]
     Active Substance: SECUKINUMAB
     Indication: Psoriatic arthropathy
     Dosage: 150 MG, QW (4 SEMANAS) (SOLUCION INYECTABLE EN JERINGA PRECARGADA, 1 JERINGA PRECARGADA DE 1 ML)
     Route: 058
     Dates: start: 20210720, end: 20211020

REACTIONS (1)
  - Septic arthritis staphylococcal [Recovered/Resolved with Sequelae]

NARRATIVE: CASE EVENT DATE: 20211020
